FAERS Safety Report 9164441 (Version 1)
Quarter: 2013Q1

REPORT INFORMATION
  Report Type: Spontaneous
  Country: US (occurrence: None)
  Receive Date: 20130221
  Receipt Date: 20130221
  Transmission Date: 20140127
  Serious: Yes (Other)
  Sender: FDA-Public Use
  Company Number: HRA-CDB20130017

PATIENT
  Age: 35 Year
  Sex: Female

DRUGS (1)
  1. ELLA [Suspect]
     Indication: POST COITAL CONTRACEPTION

REACTIONS (1)
  - Unintended pregnancy [None]
